FAERS Safety Report 20028556 (Version 1)
Quarter: 2021Q4

REPORT INFORMATION
  Report Type: Spontaneous
  Country: US (occurrence: US)
  Receive Date: 20211103
  Receipt Date: 20211103
  Transmission Date: 20220303
  Serious: No
  Sender: FDA-Public Use
  Company Number: US-JNJFOC-20211050642

PATIENT
  Age: 62 Year
  Sex: Male

DRUGS (1)
  1. MENS ROGAINE EXTRA STRENGTH [Suspect]
     Active Substance: MINOXIDIL
     Indication: Alopecia
     Dosage: DOSE: AS DIRECTED TWICE EVERYDAY
     Route: 061
     Dates: start: 202107, end: 2021

REACTIONS (1)
  - Application site rash [Recovered/Resolved]

NARRATIVE: CASE EVENT DATE: 20210701
